FAERS Safety Report 17693689 (Version 1)
Quarter: 2020Q2

REPORT INFORMATION
  Report Type: Report from Study
  Country: CA (occurrence: CA)
  Receive Date: 20200422
  Receipt Date: 20200422
  Transmission Date: 20200714
  Serious: Yes (Other)
  Sender: FDA-Public Use
  Company Number: CA-PFIZER INC-2020156476

PATIENT
  Sex: Male

DRUGS (6)
  1. ETANERCEPT [Suspect]
     Active Substance: ETANERCEPT
     Indication: PSORIATIC ARTHROPATHY
     Dosage: 50 MG, WEEKLY
     Route: 058
  2. ALENDRONIC [Concomitant]
     Active Substance: ALENDRONIC ACID
     Dosage: 70 MG, UNK
     Route: 065
  3. ATORVASTATIN CALCIUM. [Concomitant]
     Active Substance: ATORVASTATIN CALCIUM
     Route: 065
  4. ENBREL [Concomitant]
     Active Substance: ETANERCEPT
     Route: 065
  5. PREDNISONE. [Concomitant]
     Active Substance: PREDNISONE
     Dosage: UNK
     Route: 065
  6. METHOTREXATE SODIUM. [Suspect]
     Active Substance: METHOTREXATE SODIUM
     Dosage: 20 MG, WEEKLY
     Route: 058

REACTIONS (5)
  - Psoriasis [Unknown]
  - Drug ineffective [Unknown]
  - Bone erosion [Unknown]
  - Injection site pain [Unknown]
  - Injection site swelling [Unknown]
